FAERS Safety Report 14334400 (Version 1)
Quarter: 2017Q4

REPORT INFORMATION
  Report Type: Spontaneous
  Country: KR (occurrence: KR)
  Receive Date: 20171228
  Receipt Date: 20171228
  Transmission Date: 20180321
  Serious: Yes (Other)
  Sender: FDA-Public Use
  Company Number: KR-ALLERGAN-1773442US

PATIENT
  Age: 34 Year
  Sex: Female

DRUGS (1)
  1. BOTULINUM TOXIN TYPE A UNK [Suspect]
     Active Substance: BOTULINUM TOXIN TYPE A
     Indication: STRABISMUS
     Dosage: 2.5 UNITS, SINGLE
     Route: 030

REACTIONS (4)
  - Retinopathy proliferative [Recovered/Resolved]
  - Visual acuity reduced [Recovered/Resolved]
  - Retinal detachment [Recovered/Resolved]
  - Off label use [Unknown]
